FAERS Safety Report 4395646-3 (Version None)
Quarter: 2004Q3

REPORT INFORMATION
  Report Type: 
  Country: None (occurrence: None)
  Receive Date: 20040707
  Receipt Date: 20040624
  Transmission Date: 20050211
  Serious: Yes (Life-Threatening, Hospitalization)
  Sender: FDA-Public Use
  Company Number: NSADSS2002016435

PATIENT
  Age: 58 Year
  Sex: Male
  Weight: 120 kg

DRUGS (10)
  1. REMICADE [Suspect]
     Indication: ARTHRITIS
     Dosage: 3 MG/KG, 1 IN 1 AS NECESSARY, INTRAVENOUS DRIP
     Route: 041
     Dates: start: 20010124, end: 20010124
  2. REMICADE [Suspect]
     Indication: ARTHRITIS
     Dosage: 3 MG/KG, 1 IN 1 AS NECESSARY, INTRAVENOUS DRIP
     Route: 041
     Dates: start: 20020404, end: 20020404
  3. METHOTREXATE [Suspect]
     Indication: ARTHRITIS
     Dosage: 15 MG, ORAL
     Route: 048
     Dates: start: 19960101, end: 20020505
  4. PREDNISONE [Suspect]
     Indication: ARTHRITIS
     Dosage: 10 MG, ORAL
     Route: 048
     Dates: start: 20001019
  5. INACID (INDOMETACIN) [Concomitant]
  6. ACFOL (FOLIC ACID) [Concomitant]
  7. DIGOXIN [Concomitant]
  8. BECOZYME (BECOZYME) [Concomitant]
  9. ENALAPRIL MALEATE [Concomitant]
  10. SINTROM [Concomitant]

REACTIONS (23)
  - AORTIC DISORDER [None]
  - AORTIC VALVE INCOMPETENCE [None]
  - APHASIA [None]
  - ARRHYTHMIA [None]
  - ATRIAL FIBRILLATION [None]
  - BILE DUCT STENOSIS [None]
  - BUNDLE BRANCH BLOCK RIGHT [None]
  - CARDIOMEGALY [None]
  - CHRONIC OBSTRUCTIVE AIRWAYS DISEASE [None]
  - CONDITION AGGRAVATED [None]
  - EJECTION FRACTION DECREASED [None]
  - ENCEPHALITIS [None]
  - HEPATIC CYST [None]
  - HEPATOSPLENOMEGALY [None]
  - HYPERTENSIVE HEART DISEASE [None]
  - MENINGITIS LISTERIA [None]
  - MITRAL VALVE INCOMPETENCE [None]
  - MYOCARDIAL ISCHAEMIA [None]
  - OPPORTUNISTIC INFECTION [None]
  - PROTHROMBIN TIME PROLONGED [None]
  - PSORIASIS [None]
  - PSYCHOMOTOR AGITATION [None]
  - TUBERCULOSIS [None]
